FAERS Safety Report 7152410-X (Version None)
Quarter: 2010Q4

REPORT INFORMATION
  Report Type: 
  Country: None (occurrence: None)
  Receive Date: 20101124
  Receipt Date: 20101113
  Transmission Date: 20110411
  Serious: Yes (Disabling)
  Sender: FDA-Public Use
  Company Number: OSCN-NO-0604S-0098

PATIENT
  Age: 51 Year
  Sex: Male
  Weight: 95 kg

DRUGS (2)
  1. OMNISCAN [Suspect]
     Indication: COMPLICATIONS OF TRANSPLANTED KIDNEY
     Dosage: SEE IMAGE
     Route: 042
     Dates: start: 20030904, end: 20030904
  2. OMNISCAN [Suspect]
     Indication: COMPLICATIONS OF TRANSPLANTED KIDNEY
     Dosage: SEE IMAGE
     Route: 042
     Dates: start: 20050411, end: 20050411

REACTIONS (6)
  - GAIT DISTURBANCE [None]
  - HYPOAESTHESIA [None]
  - NEPHROGENIC SYSTEMIC FIBROSIS [None]
  - PENILE ULCERATION [None]
  - PRURITUS [None]
  - RESTLESS LEGS SYNDROME [None]
